FAERS Safety Report 5073195-7 (Version None)
Quarter: 2006Q3

REPORT INFORMATION
  Report Type: 
  Country: None (occurrence: None)
  Receive Date: 20060711
  Receipt Date: 20060323
  Transmission Date: 20061208
  Serious: No
  Sender: FDA-Public Use
  Company Number: 2006S1000066

PATIENT
  Age: 70 Year
  Sex: Female

DRUGS (2)
  1. CUBICIN [Suspect]
     Indication: NECROTISING FASCIITIS
     Dosage: 4 MG/KG ; IV
     Route: 042
  2. CUBICIN [Suspect]
     Indication: SEPSIS
     Dosage: 4 MG/KG ; IV
     Route: 042

REACTIONS (1)
  - INTERNATIONAL NORMALISED RATIO INCREASED [None]
